FAERS Safety Report 8579450-8 (Version None)
Quarter: 2012Q3

REPORT INFORMATION
  Report Type: 
  Country: None (occurrence: None)
  Receive Date: 20120808
  Receipt Date: 20120730
  Transmission Date: 20120928
  Serious: Yes (Hospitalization)
  Sender: FDA-Public Use
  Company Number: US-GLAXOSMITHKLINE-A0804412A

PATIENT
  Age: 58 Year
  Sex: Male

DRUGS (2)
  1. AVANDAMET [Suspect]
     Indication: DIABETES MELLITUS
     Route: 048
     Dates: start: 20061025, end: 20070102
  2. AVANDIA [Suspect]
     Indication: DIABETES MELLITUS
     Route: 048
     Dates: start: 20060113, end: 20061112

REACTIONS (3)
  - MYOCARDIAL INFARCTION [None]
  - ASTHENIA [None]
  - DEPRESSION [None]
